FAERS Safety Report 19029432 (Version 7)
Quarter: 2021Q3

REPORT INFORMATION
  Report Type: Spontaneous
  Country: PL (occurrence: PL)
  Receive Date: 20210318
  Receipt Date: 20210726
  Transmission Date: 20211014
  Serious: Yes (Hospitalization, Other)
  Sender: FDA-Public Use
  Company Number: PL-BEH-2021129606

PATIENT
  Age: 32 Year
  Sex: Female
  Weight: 73 kg

DRUGS (5)
  1. FISH OIL [Concomitant]
     Active Substance: FISH OIL
  2. MAGNESIUM CITRATE;PYRIDOXINE HYDROCHLORIDE [Concomitant]
     Active Substance: MAGNESIUM CITRATE\PYRIDOXINE
  3. RHOPHYLAC [Suspect]
     Active Substance: HUMAN RHO(D) IMMUNE GLOBULIN
     Indication: PROPHYLAXIS AGAINST RH ISOIMMUNISATION
     Dosage: UNK, SINGLE
     Route: 030
     Dates: start: 20210122, end: 20210122
  4. RHOPHYLAC [Suspect]
     Active Substance: HUMAN RHO(D) IMMUNE GLOBULIN
     Indication: PROPHYLAXIS AGAINST RH ISOIMMUNISATION
     Dosage: UNK, SINGLE
     Route: 030
     Dates: start: 20210122, end: 20210122
  5. PRENATAL CLASSIC [Concomitant]

REACTIONS (5)
  - Genital haemorrhage [Recovered/Resolved]
  - Directional Doppler flow tests abnormal [Recovered/Resolved]
  - Exposure during pregnancy [Recovered/Resolved]
  - Polyhydramnios [Unknown]
  - Post procedural haemorrhage [Recovered/Resolved]

NARRATIVE: CASE EVENT DATE: 20210312
